FAERS Safety Report 9862000 (Version 1)
Quarter: 2014Q1

REPORT INFORMATION
  Report Type: Spontaneous
  Country: US (occurrence: None)
  Receive Date: 20140131
  Receipt Date: 20140131
  Transmission Date: 20141002
  Serious: Yes (Life-Threatening)
  Sender: FDA-Public Use
  Company Number: None

PATIENT
  Age: 65 Year
  Sex: Male
  Weight: 104.33 kg

DRUGS (1)
  1. AVELOX [Suspect]
     Indication: PROSTATITIS
     Route: 048
     Dates: start: 20140115, end: 20140119

REACTIONS (3)
  - Iritis [None]
  - Syncope [None]
  - Electrocardiogram QT prolonged [None]
